FAERS Safety Report 5759959-2 (Version None)
Quarter: 2008Q2

REPORT INFORMATION
  Report Type: 
  Country: None (occurrence: None)
  Receive Date: 20080605
  Receipt Date: 20080528
  Transmission Date: 20081010
  Serious: Yes (Other)
  Sender: FDA-Public Use
  Company Number: FR-ROCHE-557196

PATIENT
  Sex: Female
  Weight: 47 kg

DRUGS (6)
  1. ROVALCYTE [Suspect]
     Route: 048
     Dates: start: 20071221, end: 20080429
  2. CELLCEPT [Concomitant]
     Route: 048
     Dates: start: 20070913
  3. ATENOLOL [Concomitant]
     Route: 048
     Dates: start: 20070919
  4. NEXIUM [Concomitant]
     Dosage: DRUG REPORTED:INEXIUM 40
     Route: 048
     Dates: start: 20070513
  5. PREDNISONE [Concomitant]
     Route: 048
     Dates: start: 20070913
  6. PROGRAF [Concomitant]
     Route: 048
     Dates: start: 20070915

REACTIONS (1)
  - DEAFNESS [None]
